FAERS Safety Report 7593225-8 (Version None)
Quarter: 2011Q3

REPORT INFORMATION
  Report Type: 
  Country: None (occurrence: None)
  Receive Date: 20110706
  Receipt Date: 20110620
  Transmission Date: 20111222
  Serious: Yes (Hospitalization)
  Sender: FDA-Public Use
  Company Number: NL-CELGENEUS-114-AB007-11060051

PATIENT
  Sex: Male
  Weight: 65 kg

DRUGS (16)
  1. METFORMIN HCL [Concomitant]
     Dosage: 1000 MILLIGRAM
     Route: 048
     Dates: start: 20050101
  2. FERROFUMARAAT [Concomitant]
     Dosage: 400 MILLIGRAM
     Route: 048
     Dates: start: 20110201
  3. LOPERAMIDE [Concomitant]
     Route: 048
     Dates: start: 20110618
  4. HYDROCHLOROTHIAZIDE [Suspect]
     Indication: HYPERTENSION
     Dosage: 25 MILLIGRAM
     Route: 048
     Dates: start: 20060101, end: 20110529
  5. METFORMIN HCL [Concomitant]
     Dosage: 3000 MILLIGRAM
     Dates: start: 20110529, end: 20110530
  6. FERROFUMARAAT [Concomitant]
     Dosage: 400 MILLIGRAM
     Route: 048
     Dates: start: 20110529, end: 20110601
  7. PHOSPHATE [Concomitant]
     Dosage: 90 MILLILITER
     Route: 050
     Dates: start: 20110620
  8. CALCIUM GLUBIONATE [Concomitant]
     Dosage: 30 MILLILITER
     Route: 051
     Dates: start: 20110531, end: 20110601
  9. OMEPRAZOLE [Concomitant]
     Dosage: 80 MILLIGRAM
     Route: 048
     Dates: start: 20110201, end: 20110529
  10. INSULIN FLEXPEN [Concomitant]
     Dosage: N/A
     Route: 058
     Dates: start: 20110619
  11. LOPERAMIDE [Concomitant]
     Route: 048
     Dates: start: 20110531, end: 20110607
  12. LOPERAMIDE [Concomitant]
     Dosage: 8 MILLIGRAM
     Route: 048
     Dates: start: 20110531, end: 20110601
  13. DICLOFENAC SODIUM [Concomitant]
     Dosage: 100 MILLIGRAM
     Route: 048
     Dates: start: 20110531, end: 20110601
  14. ABRAXANE [Suspect]
     Dosage: 150 MILLIGRAM/SQ. METER
     Route: 065
     Dates: start: 20110524, end: 20110621
  15. CALCIUM GLUBIONATE [Concomitant]
     Dosage: 20 MILLILITER
     Route: 051
     Dates: start: 20110529, end: 20110530
  16. LOPERAMIDE [Concomitant]
     Dosage: 16 MILLIGRAM
     Route: 048
     Dates: start: 20110607

REACTIONS (3)
  - HYPOMAGNESAEMIA [None]
  - HYPOKALAEMIA [None]
  - HYPOCALCAEMIA [None]
